FAERS Safety Report 25119635 (Version 3)
Quarter: 2025Q2

REPORT INFORMATION
  Report Type: Spontaneous
  Country: US (occurrence: US)
  Receive Date: 20250325
  Receipt Date: 20250510
  Transmission Date: 20250717
  Serious: Yes (Hospitalization, Other)
  Sender: SANOFI AVENTIS
  Company Number: US-SA-2025SA085024

PATIENT
  Age: 65 Year
  Sex: Female

DRUGS (25)
  1. DUPIXENT [Suspect]
     Active Substance: DUPILUMAB
     Indication: Rheumatoid arthritis
     Dosage: 300 MG, QOW
     Route: 058
     Dates: start: 20250103
  2. DUPIXENT [Suspect]
     Active Substance: DUPILUMAB
     Indication: Nasal polyps
  3. ALBUTEROL SULFATE [Concomitant]
     Active Substance: ALBUTEROL SULFATE
  4. ATORVASTATIN [Concomitant]
     Active Substance: ATORVASTATIN
  5. ATORVASTATIN [Concomitant]
     Active Substance: ATORVASTATIN
  6. BENZONATATE [Concomitant]
     Active Substance: BENZONATATE
  7. BREO ELLIPTA [Concomitant]
     Active Substance: FLUTICASONE FUROATE\VILANTEROL TRIFENATATE
  8. ELIQUIS [Concomitant]
     Active Substance: APIXABAN
  9. ENBREL [Concomitant]
     Active Substance: ETANERCEPT
  10. FLECAINIDE [Concomitant]
     Active Substance: FLECAINIDE
  11. FLECAINIDE [Concomitant]
     Active Substance: FLECAINIDE
  12. FLUTICASONE [Concomitant]
     Active Substance: FLUTICASONE
  13. FOLIC ACID [Concomitant]
     Active Substance: FOLIC ACID
  14. FOLIC ACID [Concomitant]
     Active Substance: FOLIC ACID
  15. HUMIRA [Concomitant]
     Active Substance: ADALIMUMAB
  16. LEVOTHYROXINE [Concomitant]
     Active Substance: LEVOTHYROXINE
  17. LEVOTHYROXINE [Concomitant]
     Active Substance: LEVOTHYROXINE
  18. METHOTREXATE [Concomitant]
     Active Substance: METHOTREXATE
  19. METOPROLOL SUCCINATE [Concomitant]
     Active Substance: METOPROLOL SUCCINATE
  20. METOPROLOL TARTRATE [Concomitant]
     Active Substance: METOPROLOL TARTRATE
  21. MONTELUKAST SODIUM [Concomitant]
     Active Substance: MONTELUKAST SODIUM
  22. PREDNISONE [Concomitant]
     Active Substance: PREDNISONE
  23. VENTOLIN HFA [Concomitant]
     Active Substance: ALBUTEROL SULFATE
  24. ZYRTEC [Concomitant]
     Active Substance: CETIRIZINE HYDROCHLORIDE
  25. VITAMIN D NOS [Concomitant]
     Active Substance: CHOLECALCIFEROL\ERGOCALCIFEROL

REACTIONS (4)
  - Knee operation [Unknown]
  - Pain [Unknown]
  - Loss of personal independence in daily activities [Unknown]
  - Product use in unapproved indication [Unknown]

NARRATIVE: CASE EVENT DATE: 20250101
